FAERS Safety Report 17169643 (Version 1)
Quarter: 2019Q4

REPORT INFORMATION
  Report Type: Spontaneous
  Country: US (occurrence: US)
  Receive Date: 20191218
  Receipt Date: 20191218
  Transmission Date: 20200122
  Serious: Yes (Hospitalization, Other)
  Sender: FDA-Public Use
  Company Number: US-APOTEX-2019AP026060

PATIENT
  Age: 49 Year
  Sex: Male

DRUGS (1)
  1. AMOXICILLIN /CLAVULANATE [Suspect]
     Active Substance: AMOXICILLIN\CLAVULANATE POTASSIUM
     Indication: OROPHARYNGEAL PAIN
     Dosage: UNK UNK, BID
     Route: 065

REACTIONS (1)
  - Agranulocytosis [Recovered/Resolved]
